FAERS Safety Report 17648331 (Version 1)
Quarter: 2020Q2

REPORT INFORMATION
  Report Type: Spontaneous
  Country: FR (occurrence: FR)
  Receive Date: 20200408
  Receipt Date: 20200408
  Transmission Date: 20200713
  Serious: Yes (Hospitalization)
  Sender: FDA-Public Use
  Company Number: FR-JNJFOC-20200401918

PATIENT
  Age: 64 Year
  Sex: Male
  Weight: 74 kg

DRUGS (11)
  1. SOLUPRED                           /00016201/ [Concomitant]
     Active Substance: PREDNISOLONE
  2. VESICARE [Concomitant]
     Active Substance: SOLIFENACIN SUCCINATE
  3. UROREC [Concomitant]
     Active Substance: SILODOSIN
  4. PARACETAMOL [Concomitant]
     Active Substance: ACETAMINOPHEN
  5. LOPERAMIDE [Concomitant]
     Active Substance: LOPERAMIDE
  6. BISOPROLOL [Concomitant]
     Active Substance: BISOPROLOL
  7. ZYTIGA [Suspect]
     Active Substance: ABIRATERONE ACETATE
     Indication: PROSTATE CANCER METASTATIC
     Route: 048
     Dates: start: 201912, end: 20200313
  8. RACECADOTRIL [Concomitant]
     Active Substance: RACECADOTRIL
  9. GURONSAN                           /00818401/ [Concomitant]
  10. TUSSIDANE [Concomitant]
     Active Substance: DEXTROMETHORPHAN HYDROBROMIDE
  11. KEPPRA [Concomitant]
     Active Substance: LEVETIRACETAM

REACTIONS (1)
  - Hyponatraemia [Recovered/Resolved]

NARRATIVE: CASE EVENT DATE: 201912
